FAERS Safety Report 7283410-7 (Version None)
Quarter: 2011Q1

REPORT INFORMATION
  Report Type: 
  Country: None (occurrence: None)
  Receive Date: 20110209
  Receipt Date: 20100927
  Transmission Date: 20110831
  Serious: No
  Sender: FDA-Public Use
  Company Number: A0884298A

PATIENT
  Age: 63 Year
  Sex: Female

DRUGS (11)
  1. LISINOPRIL [Concomitant]
     Indication: HYPERTENSION
     Dosage: 40MG PER DAY
     Route: 048
  2. AVANDIA [Concomitant]
     Indication: DIABETES MELLITUS
     Dosage: 4MG TWICE PER DAY
     Route: 048
  3. PRILOSEC [Concomitant]
     Dosage: 20MG PER DAY
     Route: 048
  4. MAXZIDE [Concomitant]
     Indication: HYPERTENSION
  5. AMLODIPINE [Concomitant]
     Indication: HYPERTENSION
     Dosage: 10MG PER DAY
     Route: 048
  6. LORTAB [Concomitant]
     Indication: FIBROMYALGIA
     Route: 048
  7. CYCLOBENZAPRINE [Concomitant]
     Indication: FIBROMYALGIA
     Dosage: 10MG PER DAY
  8. SAVELLA [Suspect]
     Indication: FIBROMYALGIA
     Route: 048
     Dates: start: 20100908
  9. BISOPROLOL [Concomitant]
     Indication: TACHYCARDIA
     Dosage: 20MG PER DAY
     Route: 048
  10. PAXIL [Suspect]
     Indication: PAIN
     Route: 048
     Dates: end: 20100914
  11. SIMVASTATIN [Concomitant]
     Indication: BLOOD CHOLESTEROL INCREASED
     Dosage: 40MG PER DAY
     Route: 048

REACTIONS (3)
  - TREMOR [None]
  - IRRITABILITY [None]
  - CRYING [None]
